FAERS Safety Report 12649433 (Version 2)
Quarter: 2016Q3

REPORT INFORMATION
  Report Type: Spontaneous
  Country: CH (occurrence: CH)
  Receive Date: 20160812
  Receipt Date: 20160822
  Transmission Date: 20161109
  Serious: Yes (Death)
  Sender: FDA-Public Use
  Company Number: CH-ELI_LILLY_AND_COMPANY-CH201608007017

PATIENT
  Age: 68 Year
  Sex: Male
  Weight: 109 kg

DRUGS (7)
  1. MEPHAMESON [Concomitant]
     Active Substance: DEXAMETHASONE
     Indication: PREMEDICATION
     Dosage: 8 MG, UNKNOWN
     Route: 040
     Dates: start: 20160714
  2. TAVEGYL [Concomitant]
     Active Substance: CLEMASTINE FUMARATE
     Indication: PREMEDICATION
     Dosage: 2 MG, UNKNOWN
     Route: 040
     Dates: start: 20160714
  3. ONDANSETRON [Concomitant]
     Active Substance: ONDANSETRON
     Indication: PRODUCT USED FOR UNKNOWN INDICATION
     Dosage: 8 MG, UNKNOWN
     Route: 048
  4. ERBITUX [Suspect]
     Active Substance: CETUXIMAB
     Indication: HYPOPHARYNGEAL CANCER
     Dosage: 550 MG, UNKNOWN
     Route: 042
     Dates: start: 20160714
  5. ERBITUX [Suspect]
     Active Substance: CETUXIMAB
     Dosage: 50 ML, UNKNOWN
     Route: 042
  6. CARBOPLATIN. [Concomitant]
     Active Substance: CARBOPLATIN
     Indication: HYPOPHARYNGEAL CANCER
     Dosage: 8 MG, UNKNOWN
     Route: 048
     Dates: start: 20160624
  7. 5 FLUORO URACIL [Concomitant]
     Active Substance: FLUOROURACIL
     Indication: HYPOPHARYNGEAL CANCER
     Dosage: 8 MG, UNKNOWN
     Route: 048

REACTIONS (2)
  - Swollen tongue [Fatal]
  - Throat tightness [Fatal]

NARRATIVE: CASE EVENT DATE: 20160714
